FAERS Safety Report 15312524 (Version 1)
Quarter: 2018Q4

REPORT INFORMATION
  Report Type: Spontaneous
  Country: CN (occurrence: CN)
  Receive Date: 20180823
  Receipt Date: 20180823
  Transmission Date: 20190204
  Serious: No
  Sender: FDA-Public Use
  Company Number: CN-B. BRAUN MEDICAL INC.-2054161

PATIENT
  Age: 70 Year
  Sex: Female
  Weight: 50.2 kg

DRUGS (1)
  1. NUTRILIPID I.V. FAT EMULSION [Suspect]
     Active Substance: SOYBEAN OIL
     Indication: NUTRITIONAL SUPPLEMENTATION
     Route: 041
     Dates: start: 20170730, end: 20170731

REACTIONS (2)
  - Injection site pain [Recovered/Resolved]
  - Pruritus [Recovered/Resolved]

NARRATIVE: CASE EVENT DATE: 20170731
